APPROVED DRUG PRODUCT: TADALAFIL
Active Ingredient: TADALAFIL
Strength: 20MG
Dosage Form/Route: TABLET;ORAL
Application: A209167 | Product #004 | TE Code: AB1
Applicant: ACCORD HEALTHCARE INC
Approved: Mar 26, 2019 | RLD: No | RS: No | Type: RX